FAERS Safety Report 18711661 (Version 1)
Quarter: 2021Q1

REPORT INFORMATION
  Report Type: Spontaneous
  Country: DE (occurrence: DE)
  Receive Date: 20210107
  Receipt Date: 20210107
  Transmission Date: 20210419
  Serious: Yes (Hospitalization, Congenital Anomaly, Other)
  Sender: FDA-Public Use
  Company Number: NVSC2020DE342725

PATIENT
  Age: 1 Day
  Sex: Male
  Weight: 2.4 kg

DRUGS (4)
  1. LAMOTRIGIN [Suspect]
     Active Substance: LAMOTRIGINE
     Indication: FOETAL EXPOSURE DURING PREGNANCY
     Dosage: MATERNAL DOSE: 600 (MG/D)/ INITAL 100?0?100MG DAILY, INCREASED TO 300?0?300MG DAILY
     Route: 064
     Dates: start: 20190923, end: 20200609
  2. VALPROINSAEURE [Suspect]
     Active Substance: VALPROIC ACID
     Indication: FOETAL EXPOSURE DURING PREGNANCY
     Dosage: MATERNAL DOSE: 1500 (MG/D)/ 1000?0?500 MG DAILY
     Route: 064
  3. TRIAMGALEN [Concomitant]
     Active Substance: TRIAMCINOLONE ACETONIDE
     Indication: FOETAL EXPOSURE DURING PREGNANCY
     Dosage: MATERNAL DOSE: UNK, PRN (AS NECESSARY, IF REQUIRED)
     Route: 064
     Dates: start: 20190923, end: 20191218
  4. KEPPRA [Concomitant]
     Active Substance: LEVETIRACETAM
     Indication: FOETAL EXPOSURE DURING PREGNANCY
     Dosage: MATERNAL DOSE: 2000 (MG/D) 2 SEPARATED DOSES
     Route: 064

REACTIONS (4)
  - Microcephaly [Not Recovered/Not Resolved]
  - Coarctation of the aorta [Unknown]
  - Foetal exposure during pregnancy [Unknown]
  - Patent ductus arteriosus [Recovered/Resolved with Sequelae]

NARRATIVE: CASE EVENT DATE: 20200609
